FAERS Safety Report 6542528-4 (Version None)
Quarter: 2010Q1

REPORT INFORMATION
  Report Type: 
  Country: None (occurrence: None)
  Receive Date: 20100119
  Receipt Date: 20100105
  Transmission Date: 20100710
  Serious: Yes (Hospitalization)
  Sender: FDA-Public Use
  Company Number: IT-MYLANLABS-2010S1000251

PATIENT
  Sex: Male

DRUGS (1)
  1. TICLOPIDINE HCL [Suspect]
     Indication: DRUG USE FOR UNKNOWN INDICATION

REACTIONS (5)
  - CHILLS [None]
  - LEUKOPENIA [None]
  - MONOCYTOSIS [None]
  - NEUTROPENIA [None]
  - PYREXIA [None]
